FAERS Safety Report 15792442 (Version 2)
Quarter: 2019Q1

REPORT INFORMATION
  Report Type: Spontaneous
  Country: JP (occurrence: JP)
  Receive Date: 20190107
  Receipt Date: 20190327
  Transmission Date: 20190417
  Serious: Yes (Other)
  Sender: FDA-Public Use
  Company Number: JP-BAYER-2018-240311

PATIENT

DRUGS (1)
  1. BAYASPIRIN 100 MG [Suspect]
     Active Substance: ASPIRIN
     Route: 064

REACTIONS (4)
  - Foetal exposure during pregnancy [None]
  - Cleft lip and palate [None]
  - Arnold-Chiari malformation [None]
  - Lipomeningocele [None]
